FAERS Safety Report 7135771-7 (Version None)
Quarter: 2010Q4

REPORT INFORMATION
  Report Type: 
  Country: None (occurrence: None)
  Receive Date: 20101203
  Receipt Date: 20101126
  Transmission Date: 20110411
  Serious: Yes (Hospitalization)
  Sender: FDA-Public Use
  Company Number: FR-PFIZER INC-2010159270

PATIENT
  Age: 79 Year
  Sex: Female

DRUGS (4)
  1. CELEBREX [Suspect]
     Indication: MUSCULOSKELETAL PAIN
     Dosage: 100 MG, 1X/DAY
     Route: 048
     Dates: start: 20090101, end: 20101103
  2. CHRONADALATE [Suspect]
     Indication: HYPERTENSION
     Dosage: 30 MG, 1X/DAY
     Dates: start: 20090101, end: 20101103
  3. DIAMICRON [Concomitant]
     Dosage: 30 MG, 1X/DAY
     Dates: start: 20090101
  4. TOBRADEX [Concomitant]

REACTIONS (3)
  - COLITIS ISCHAEMIC [None]
  - DIARRHOEA [None]
  - RECTAL HAEMORRHAGE [None]
